FAERS Safety Report 7042125-0 (Version None)
Quarter: 2010Q4

REPORT INFORMATION
  Report Type: 
  Country: None (occurrence: None)
  Receive Date: 20101013
  Receipt Date: 20091104
  Transmission Date: 20110411
  Serious: No
  Sender: FDA-Public Use
  Company Number: US-ASTRAZENECA-2009SE24422

PATIENT
  Age: 55 Year
  Sex: Male

DRUGS (5)
  1. SYMBICORT [Suspect]
     Route: 055
     Dates: start: 20091019
  2. HYZAAR [Concomitant]
  3. WELLBUTRIN [Concomitant]
  4. SINGULAIR [Concomitant]
  5. THEOPHYLLINE [Concomitant]

REACTIONS (3)
  - HEADACHE [None]
  - HUNGER [None]
  - THERAPEUTIC RESPONSE UNEXPECTED [None]
